FAERS Safety Report 7920491-9 (Version None)
Quarter: 2011Q4

REPORT INFORMATION
  Report Type: 
  Country: None (occurrence: None)
  Receive Date: 20111117
  Receipt Date: 20111109
  Transmission Date: 20120403
  Serious: Yes (Hospitalization, Other)
  Sender: FDA-Public Use
  Company Number: PHHO2011DE018801

PATIENT
  Sex: Female
  Weight: 60.9 kg

DRUGS (5)
  1. CALCIVIT D [Concomitant]
     Indication: OSTEOPOROSIS
  2. VALORON [Concomitant]
     Indication: PAIN
     Dosage: UNK
  3. NOVALGIN [Concomitant]
     Indication: PAIN
  4. TASIGNA [Suspect]
     Indication: CHRONIC MYELOID LEUKAEMIA
     Dosage: UNK
     Dates: start: 20051103
  5. AMARYL [Suspect]
     Indication: DIABETES MELLITUS
     Dosage: UNK

REACTIONS (2)
  - CIRCULATORY COLLAPSE [None]
  - LOSS OF CONSCIOUSNESS [None]
